FAERS Safety Report 8600776-3 (Version None)
Quarter: 2012Q3

REPORT INFORMATION
  Report Type: 
  Country: None (occurrence: None)
  Receive Date: 20120817
  Receipt Date: 20120809
  Transmission Date: 20120928
  Serious: Yes (Other)
  Sender: FDA-Public Use
  Company Number: US-BAYER-2012-082418

PATIENT
  Age: 44 Year
  Sex: Female

DRUGS (6)
  1. THYROID TAB [Concomitant]
     Dosage: 60 MG, UNK
     Dates: start: 20111014, end: 20120209
  2. YAZ [Suspect]
     Indication: MIGRAINE
  3. DROSPIRENONE AND ETHINYL ESTRADIOL [Suspect]
  4. METFORMIN HCL [Concomitant]
     Dosage: 500 MG, UNK
     Dates: start: 20111014, end: 20120104
  5. YAZ [Suspect]
     Indication: CONTRACEPTION
  6. THYROID TAB [Concomitant]
     Dosage: 30 MG, UNK
     Dates: start: 20111217

REACTIONS (1)
  - DEEP VEIN THROMBOSIS [None]
